FAERS Safety Report 9659356 (Version 4)
Quarter: 2014Q1

REPORT INFORMATION
  Report Type: Spontaneous
  Country: US (occurrence: US)
  Receive Date: 20131031
  Receipt Date: 20140117
  Transmission Date: 20141002
  Serious: Yes (Other)
  Sender: FDA-Public Use
  Company Number: US-JNJFOC-20131016374

PATIENT
  Sex: Female

DRUGS (11)
  1. UNSPECIFIED FENTANYL TRANSDERMAL SYSTEM [Suspect]
     Indication: PAIN
     Dosage: STARTED ABOUT 4 YEARS AGO
     Route: 062
     Dates: end: 2013
  2. SANDOZ FENTANYL TRANSDERMAL SYSTEM [Suspect]
     Indication: PAIN
     Route: 062
  3. DURAGESIC [Suspect]
     Indication: PAIN
     Route: 062
  4. DURAGESIC [Suspect]
     Indication: PAIN
     Route: 062
     Dates: start: 2013
  5. MYLAN FENTANYL TRANSDERMAL SYSTEM [Suspect]
     Indication: PAIN
     Route: 062
  6. FENTANYL TRANSDERMAL SYSTEM [Suspect]
     Indication: PAIN
     Route: 062
  7. SOMA [Concomitant]
     Route: 065
     Dates: start: 2009
  8. PROZAC [Concomitant]
     Indication: EPSTEIN-BARR VIRUS INFECTION
     Route: 065
     Dates: start: 1994
  9. PROZAC [Concomitant]
     Indication: FATIGUE
     Route: 065
     Dates: start: 1994
  10. PROZAC [Concomitant]
     Indication: DEPRESSION
     Route: 065
     Dates: start: 1994
  11. ADDERALL [Concomitant]
     Indication: ATTENTION DEFICIT/HYPERACTIVITY DISORDER
     Route: 065
     Dates: start: 1994

REACTIONS (12)
  - Drug dependence [Not Recovered/Not Resolved]
  - Adverse drug reaction [Recovered/Resolved]
  - Agitation [Not Recovered/Not Resolved]
  - Yawning [Recovered/Resolved]
  - Muscle twitching [Recovered/Resolved]
  - Drug dose omission [Unknown]
  - Hyperhidrosis [Unknown]
  - Pain [Not Recovered/Not Resolved]
  - Product adhesion issue [Unknown]
  - Wrong technique in drug usage process [Unknown]
  - Poor quality drug administered [Unknown]
  - Product quality issue [Unknown]
